FAERS Safety Report 17096926 (Version 1)
Quarter: 2019Q4

REPORT INFORMATION
  Report Type: Spontaneous
  Country: US (occurrence: US)
  Receive Date: 20191102
  Receipt Date: 20191102
  Transmission Date: 20200122
  Serious: Yes (Hospitalization)
  Sender: FDA-Public Use
  Company Number: None

PATIENT
  Age: 28 Year
  Sex: Female
  Weight: 61.6 kg

DRUGS (7)
  1. ONCASPAR [Suspect]
     Active Substance: PEGASPARGASE
     Dates: end: 20191031
  2. RITUXIMAB (MOAB C2B8 ANTI CD20, CHIMERIC) [Suspect]
     Active Substance: RITUXIMAB
     Dates: end: 20191025
  3. METHOTREXATE. [Suspect]
     Active Substance: METHOTREXATE
     Dates: end: 20191024
  4. CYTARABINE. [Suspect]
     Active Substance: CYTARABINE
     Dates: end: 20191027
  5. MERCAPTOPURINE. [Suspect]
     Active Substance: MERCAPTOPURINE
     Dates: end: 20191021
  6. CYCLOPHOSPHAMIDE. [Suspect]
     Active Substance: CYCLOPHOSPHAMIDE
     Dates: end: 20191017
  7. VINCRISTINE SULFATE. [Suspect]
     Active Substance: VINCRISTINE SULFATE
     Dates: end: 20191031

REACTIONS (9)
  - White blood cell count decreased [None]
  - Neutrophil count decreased [None]
  - Faeces discoloured [None]
  - Vomiting [None]
  - Pyrexia [None]
  - Diarrhoea [None]
  - Haemoglobin decreased [None]
  - Platelet count decreased [None]
  - Haematemesis [None]

NARRATIVE: CASE EVENT DATE: 20191101
